FAERS Safety Report 8068064-4 (Version None)
Quarter: 2012Q1

REPORT INFORMATION
  Report Type: 
  Country: None (occurrence: None)
  Receive Date: 20120124
  Receipt Date: 20110915
  Transmission Date: 20120608
  Serious: No
  Sender: FDA-Public Use
  Company Number: US-AMGEN-USASP2011047654

PATIENT
  Age: 74 Year
  Sex: Female

DRUGS (7)
  1. RANITIDINE [Concomitant]
  2. VESICARE [Concomitant]
     Dosage: UNK
  3. PROLIA [Suspect]
     Indication: OSTEOPOROSIS POSTMENOPAUSAL
     Dosage: 60 MG, Q6MO
     Dates: start: 20110501
  4. BENGAY [Concomitant]
     Dosage: UNK
  5. LEVOXYL [Concomitant]
     Dosage: UNK
  6. PLAVIX [Concomitant]
     Dosage: UNK
  7. SIMVASTATIN [Concomitant]

REACTIONS (1)
  - MUSCLE SPASMS [None]
